FAERS Safety Report 16837028 (Version 1)
Quarter: 2019Q3

REPORT INFORMATION
  Report Type: Spontaneous
  Country: US (occurrence: US)
  Receive Date: 20190923
  Receipt Date: 20190923
  Transmission Date: 20191005
  Serious: No
  Sender: FDA-Public Use
  Company Number: US-NOVEN PHARMACEUTICALS, INC.-US2018000650

PATIENT

DRUGS (2)
  1. VITAMINS [Concomitant]
     Active Substance: VITAMINS
  2. COMBIPATCH [Suspect]
     Active Substance: ESTRADIOL\NORETHINDRONE ACETATE
     Indication: HOT FLUSH
     Dosage: CUTTING 50/140 MG PATCH INTO HALF, 2/WK EVERY MONDAY AND THURSDAY
     Route: 062
     Dates: start: 201805, end: 20181104

REACTIONS (9)
  - Product administered at inappropriate site [Recovered/Resolved]
  - Lymphadenopathy [Unknown]
  - Product storage error [Not Recovered/Not Resolved]
  - Wrong technique in product usage process [Recovered/Resolved]
  - Nasal discomfort [Unknown]
  - Off label use [Recovered/Resolved]
  - Headache [Unknown]
  - Therapy cessation [Not Recovered/Not Resolved]
  - Eye pain [Unknown]

NARRATIVE: CASE EVENT DATE: 201811
